FAERS Safety Report 5652483-7 (Version None)
Quarter: 2008Q1

REPORT INFORMATION
  Report Type: 
  Country: None (occurrence: None)
  Receive Date: 20080305
  Receipt Date: 20080305
  Transmission Date: 20080703
  Serious: Yes (Hospitalization)
  Sender: FDA-Public Use
  Company Number: None

PATIENT
  Age: 79 Year
  Sex: Male
  Weight: 67 kg

DRUGS (16)
  1. AMIODARONE HCL [Suspect]
     Indication: ATRIAL FIBRILLATION
     Dosage: 200MG TWICE DAILY PO
     Route: 048
  2. WARFARIN SODIUM [Concomitant]
  3. PLETAL [Concomitant]
  4. PROSCAR [Concomitant]
  5. ALTACE [Concomitant]
  6. FLOMAX [Concomitant]
  7. COREG [Concomitant]
  8. DIGOXIN [Concomitant]
  9. IMDUR [Concomitant]
  10. ASPIRIN [Concomitant]
  11. PROTONIX [Concomitant]
  12. MULTI-VITAMIN [Concomitant]
  13. LIPITOR [Concomitant]
  14. LASIX [Concomitant]
  15. CHOLESTYRAMINE [Concomitant]
  16. ALBUTEROL [Concomitant]

REACTIONS (10)
  - BACK PAIN [None]
  - DYSPNOEA [None]
  - FALL [None]
  - FATIGUE [None]
  - HEPATIC CONGESTION [None]
  - LUMBAR VERTEBRAL FRACTURE [None]
  - PULMONARY FIBROSIS [None]
  - PULMONARY TOXICITY [None]
  - RIGHT VENTRICULAR FAILURE [None]
  - TRANSAMINASES INCREASED [None]
